FAERS Safety Report 21195234 (Version 2)
Quarter: 2022Q4

REPORT INFORMATION
  Report Type: Report from Study
  Country: US (occurrence: US)
  Receive Date: 20220810
  Receipt Date: 20221116
  Transmission Date: 20230113
  Serious: Yes (Hospitalization, Other)
  Sender: FDA-Public Use
  Company Number: US-TAKEDA-US202024569

PATIENT
  Sex: Male

DRUGS (38)
  1. IDURSULFASE [Suspect]
     Active Substance: IDURSULFASE
     Indication: Mucopolysaccharidosis II
     Dosage: 0.5 MILLIGRAM/KILOGRAM, 1/WEEK
     Route: 042
     Dates: start: 201409
  2. NEXIUM [Concomitant]
     Active Substance: ESOMEPRAZOLE MAGNESIUM
     Indication: Gastrooesophageal reflux disease
     Dosage: UNK
     Route: 048
     Dates: start: 2016, end: 20170104
  3. TYLENOL [Concomitant]
     Active Substance: ACETAMINOPHEN
     Indication: Pyrexia
     Dosage: UNK
     Route: 048
     Dates: start: 2016
  4. TYLENOL [Concomitant]
     Active Substance: ACETAMINOPHEN
     Dosage: UNK
     Route: 048
     Dates: start: 20190403
  5. FLONASE [Concomitant]
     Active Substance: FLUTICASONE PROPIONATE
     Indication: Hypersensitivity
     Dosage: UNK
     Route: 045
     Dates: start: 20160812, end: 20170607
  6. FLONASE [Concomitant]
     Active Substance: FLUTICASONE PROPIONATE
     Indication: Rhinitis allergic
     Dosage: UNK
     Route: 045
     Dates: start: 20210108
  7. CETIRIZINE [Concomitant]
     Active Substance: CETIRIZINE HYDROCHLORIDE
     Indication: Hypersensitivity
     Dosage: UNK
     Route: 048
     Dates: start: 20160902, end: 20171116
  8. LIDOCAINE [Concomitant]
     Active Substance: LIDOCAINE
     Indication: Premedication
     Dosage: UNK
     Route: 061
     Dates: start: 20160914, end: 20160914
  9. GRISEOFULVIN MICRO [Concomitant]
     Indication: Onychomycosis
     Dosage: UNK
     Route: 048
     Dates: start: 20170106, end: 20170406
  10. MIRALAX [Concomitant]
     Active Substance: POLYETHYLENE GLYCOL 3350
     Indication: Constipation
     Dosage: UNK
     Route: 048
     Dates: start: 20170106, end: 20170804
  11. MOTRIN [Concomitant]
     Active Substance: IBUPROFEN
     Indication: Pain
     Dosage: UNK
     Route: 048
     Dates: start: 20170331, end: 20170331
  12. MOTRIN [Concomitant]
     Active Substance: IBUPROFEN
     Dosage: UNK
     Route: 048
     Dates: start: 20190610
  13. MOTRIN [Concomitant]
     Active Substance: IBUPROFEN
     Dosage: UNK
     Route: 048
     Dates: start: 20201023
  14. CITROMA [Concomitant]
     Active Substance: MAGNESIUM CITRATE
     Indication: Constipation
     Dosage: UNK
     Route: 048
     Dates: start: 20190113, end: 20191028
  15. MAGNESIUM CITRATE [Concomitant]
     Active Substance: MAGNESIUM CITRATE
     Indication: Constipation
     Dosage: UNK
     Route: 048
     Dates: start: 20190113, end: 20191028
  16. SENOKOT [Concomitant]
     Active Substance: SENNOSIDES
     Indication: Constipation
  17. BENADRYL [Concomitant]
     Active Substance: DIPHENHYDRAMINE HYDROCHLORIDE
     Indication: Dyskinesia
     Dosage: UNK
     Route: 048
     Dates: start: 20190118, end: 20191028
  18. MUCINEX [Concomitant]
     Active Substance: GUAIFENESIN
     Indication: Influenza like illness
     Dosage: UNK
     Route: 048
     Dates: start: 20190127, end: 20191028
  19. ABILIFY [Concomitant]
     Active Substance: ARIPIPRAZOLE
     Indication: Intermittent explosive disorder
     Dosage: UNK
     Route: 048
     Dates: start: 20190220, end: 20190322
  20. COGENTIN [Concomitant]
     Active Substance: BENZTROPINE MESYLATE
     Indication: Developmental delay
     Dosage: UNK
     Route: 048
     Dates: start: 20190220, end: 20190610
  21. DIASTAT [Concomitant]
     Active Substance: DIAZEPAM
     Indication: Seizure
     Dosage: UNK
     Route: 054
     Dates: start: 20190610, end: 20190727
  22. DIASTAT [Concomitant]
     Active Substance: DIAZEPAM
     Dosage: UNK
     Route: 054
     Dates: start: 20210304
  23. VITAMINS [Concomitant]
     Active Substance: VITAMINS
     Indication: Nutritional supplementation
     Dosage: UNK
     Route: 048
     Dates: start: 20190610
  24. ZOFRAN [Concomitant]
     Active Substance: ONDANSETRON HYDROCHLORIDE
     Indication: Nausea
     Dosage: UNK
     Route: 048
     Dates: start: 20190610, end: 20190628
  25. ZOFRAN [Concomitant]
     Active Substance: ONDANSETRON HYDROCHLORIDE
     Dosage: UNK
     Route: 048
     Dates: start: 20190628, end: 20190730
  26. ZOFRAN [Concomitant]
     Active Substance: ONDANSETRON HYDROCHLORIDE
     Dosage: UNK
     Route: 048
     Dates: start: 20210421
  27. FIBER [Concomitant]
     Active Substance: PSYLLIUM HUSK
     Indication: Constipation
     Dosage: UNK
     Route: 048
     Dates: start: 20190610, end: 20210415
  28. TOPAMAX [Concomitant]
     Active Substance: TOPIRAMATE
     Indication: Seizure prophylaxis
     Dosage: UNK
     Route: 048
     Dates: start: 20190621, end: 20190727
  29. KLONOPIN [Concomitant]
     Active Substance: CLONAZEPAM
     Indication: Anxiety
     Dosage: UNK
     Route: 048
     Dates: start: 20190701, end: 20190730
  30. ZYRTEC [Concomitant]
     Active Substance: CETIRIZINE HYDROCHLORIDE
     Indication: Nasal inflammation
     Dosage: UNK
     Route: 048
     Dates: start: 20190703
  31. ZANTAC [Concomitant]
     Active Substance: RANITIDINE HYDROCHLORIDE
     Indication: Gastrooesophageal reflux disease
     Dosage: UNK
     Route: 048
     Dates: start: 20190707, end: 20191021
  32. CELEBREX [Concomitant]
     Active Substance: CELECOXIB
     Indication: Pain
     Dosage: UNK
     Route: 050
     Dates: start: 20190722, end: 20201022
  33. CHRONULAC [Concomitant]
     Active Substance: LACTULOSE
     Dosage: UNK
     Route: 048
     Dates: start: 20200814
  34. VALIUM [Concomitant]
     Active Substance: DIAZEPAM
     Indication: Intermittent explosive disorder
     Dosage: UNK
     Route: 048
     Dates: start: 20201105
  35. DEPAKOTE [Concomitant]
     Active Substance: DIVALPROEX SODIUM
     Dosage: UNK
     Route: 048
     Dates: start: 20210301
  36. HEPARIN [Concomitant]
     Active Substance: HEPARIN SODIUM
     Dosage: UNK
     Route: 048
     Dates: start: 20210415, end: 20210415
  37. EMLA [Concomitant]
     Active Substance: LIDOCAINE\PRILOCAINE
     Dosage: UNK
     Route: 061
     Dates: start: 20210415, end: 20210415
  38. DULCOLAX NOS [Concomitant]
     Active Substance: BISACODYL OR DOCUSATE SODIUM
     Indication: Constipation
     Dosage: UNK
     Route: 054
     Dates: start: 20210507

REACTIONS (1)
  - Epilepsy [Recovered/Resolved]

NARRATIVE: CASE EVENT DATE: 20190725
